FAERS Safety Report 16750149 (Version 2)
Quarter: 2020Q3

REPORT INFORMATION
  Report Type: Spontaneous
  Country: US (occurrence: US)
  Receive Date: 20190828
  Receipt Date: 20200929
  Transmission Date: 20201102
  Serious: Yes (Other)
  Sender: FDA-Public Use
  Company Number: US-PFIZER INC-2019364246

PATIENT
  Age: 52 Year
  Sex: Male
  Weight: 74.84 kg

DRUGS (4)
  1. CYCLOBENZAPRINE. [Concomitant]
     Active Substance: CYCLOBENZAPRINE
     Indication: MUSCLE RELAXANT THERAPY
     Dosage: 10 MG, 2X/DAY (10MG TABLET, 1 TABLET TWICE A DAY BY MOUTH)
     Route: 048
  2. AMBIEN [Concomitant]
     Active Substance: ZOLPIDEM TARTRATE
     Indication: SLEEP DISORDER
     Dosage: UNK
  3. CHANTIX [Suspect]
     Active Substance: VARENICLINE TARTRATE
     Indication: SMOKING CESSATION THERAPY
     Dosage: UNK
     Dates: start: 201808
  4. CYCLOBENZAPRINE. [Concomitant]
     Active Substance: CYCLOBENZAPRINE
     Indication: PAIN

REACTIONS (6)
  - Myocardial infarction [Unknown]
  - Cardiac disorder [Unknown]
  - Insomnia [Unknown]
  - Type 2 diabetes mellitus [Unknown]
  - Back injury [Unknown]
  - Accident at work [Unknown]

NARRATIVE: CASE EVENT DATE: 20190102
